FAERS Safety Report 4542236-5 (Version None)
Quarter: 2004Q4

REPORT INFORMATION
  Report Type: 
  Country: None (occurrence: None)
  Receive Date: 20041227
  Receipt Date: 20041214
  Transmission Date: 20050328
  Serious: Yes (Hospitalization)
  Sender: FDA-Public Use
  Company Number: HQWYE962714DEC04

PATIENT
  Age: 18 Year
  Sex: Female

DRUGS (1)
  1. PHENERGAN [Suspect]
     Dosage: OVERDOSE AMOUNT UNKNOWN
     Dates: start: 20030821, end: 20030821

REACTIONS (2)
  - INTENTIONAL OVERDOSE [None]
  - SUICIDE ATTEMPT [None]
